FAERS Safety Report 17604857 (Version 1)
Quarter: 2020Q1

REPORT INFORMATION
  Report Type: Spontaneous
  Country: DE (occurrence: DE)
  Receive Date: 20200331
  Receipt Date: 20200331
  Transmission Date: 20200409
  Serious: Yes (Other)
  Sender: FDA-Public Use
  Company Number: DE-SHIELD TX (UK) LTD-DE-STX-20-NOR-0003

PATIENT
  Age: 28 Year
  Sex: Female
  Weight: 60 kg

DRUGS (3)
  1. FERACCRU [Suspect]
     Active Substance: FERRIC MALTOL
     Indication: IRON DEFICIENCY ANAEMIA
     Route: 048
     Dates: start: 20200128
  2. FERACCRU [Suspect]
     Active Substance: FERRIC MALTOL
     Indication: CROHN^S DISEASE
  3. HUMIRA [Concomitant]
     Active Substance: ADALIMUMAB
     Indication: PRODUCT USED FOR UNKNOWN INDICATION
     Dates: start: 201705

REACTIONS (4)
  - Diarrhoea [Recovered/Resolved]
  - Malaise [Unknown]
  - Abdominal pain [Recovered/Resolved]
  - Rash [Recovered/Resolved]

NARRATIVE: CASE EVENT DATE: 20200128
